FAERS Safety Report 19655556 (Version 10)
Quarter: 2022Q4

REPORT INFORMATION
  Report Type: Report from Study
  Country: US (occurrence: US)
  Receive Date: 20210804
  Receipt Date: 20221214
  Transmission Date: 20230113
  Serious: Yes (Hospitalization)
  Sender: FDA-Public Use
  Company Number: NVSC2021US168829

PATIENT
  Age: 69 Year
  Sex: Female
  Weight: 61.224 kg

DRUGS (4)
  1. TREPROSTINIL [Suspect]
     Active Substance: TREPROSTINIL
     Indication: Pulmonary arterial hypertension
     Dosage: 52 NG/KG/MIN, CONT
     Route: 058
     Dates: start: 20210706
  2. TREPROSTINIL [Suspect]
     Active Substance: TREPROSTINIL
     Dosage: 52 NG/KG/MIN, CONT
     Route: 058
  3. ADEMPAS [Suspect]
     Active Substance: RIOCIGUAT
     Indication: Product used for unknown indication
     Dosage: UNK
     Route: 065
  4. AMLODIPINE [Concomitant]
     Active Substance: AMLODIPINE BESYLATE
     Indication: Product used for unknown indication
     Dosage: UNK
     Route: 065

REACTIONS (14)
  - Pericardial effusion [Unknown]
  - Dyspnoea [Unknown]
  - Cardiac disorder [Unknown]
  - Gastrointestinal haemorrhage [Unknown]
  - Oesophageal haemorrhage [Unknown]
  - Infection [Unknown]
  - Diarrhoea [Unknown]
  - Nausea [Unknown]
  - Hiatus hernia [Unknown]
  - Weight decreased [Unknown]
  - Blood pressure systolic decreased [Unknown]
  - Hypotension [Unknown]
  - Wrong technique in device usage process [Unknown]
  - Injection site pain [Unknown]

NARRATIVE: CASE EVENT DATE: 20210722
